FAERS Safety Report 9472035 (Version 2)
Quarter: 2014Q1

REPORT INFORMATION
  Report Type: Spontaneous
  Country: US (occurrence: US)
  Receive Date: 20130823
  Receipt Date: 20140120
  Transmission Date: 20141002
  Serious: No
  Sender: FDA-Public Use
  Company Number: US-BIOGENIDEC-2013BI075279

PATIENT
  Age: 52 Year
  Sex: Female

DRUGS (6)
  1. AVONEX [Suspect]
     Indication: MULTIPLE SCLEROSIS
     Route: 030
     Dates: start: 20000818
  2. AVONEX [Suspect]
     Indication: MULTIPLE SCLEROSIS
     Route: 030
     Dates: start: 20130418
  3. AZATHIOPRINE [Concomitant]
     Indication: HYPOAESTHESIA
  4. ZENAFLEX [Concomitant]
     Indication: MUSCLE RELAXANT THERAPY
  5. BACLOFEN [Concomitant]
     Indication: MUSCLE RELAXANT THERAPY
  6. METODINE [Concomitant]
     Indication: FATIGUE

REACTIONS (9)
  - Osteopenia [Not Recovered/Not Resolved]
  - Hypertension [Not Recovered/Not Resolved]
  - Bladder disorder [Unknown]
  - Inappropriate schedule of drug administration [Not Recovered/Not Resolved]
  - Fall [Recovered/Resolved]
  - Muscle disorder [Not Recovered/Not Resolved]
  - Joint injury [Recovered/Resolved]
  - Injection site pain [Not Recovered/Not Resolved]
  - Injection site erythema [Recovered/Resolved]
